FAERS Safety Report 8078926-X (Version None)
Quarter: 2012Q1

REPORT INFORMATION
  Report Type: 
  Country: None (occurrence: None)
  Receive Date: 20120128
  Receipt Date: 20110512
  Transmission Date: 20120608
  Serious: Yes (Other)
  Sender: FDA-Public Use
  Company Number: US-ABBOTT-11P-163-0721649-00

PATIENT
  Age: 31 Year
  Sex: Female
  Weight: 61.29 kg

DRUGS (2)
  1. BIRTH CONTROL [Concomitant]
     Indication: PRODUCT USED FOR UNKNOWN INDICATION
  2. HUMIRA [Suspect]
     Indication: PSORIASIS
     Route: 058
     Dates: start: 20101004, end: 20110225

REACTIONS (3)
  - PAIN [None]
  - APPENDICITIS [None]
  - ABDOMINAL PAIN UPPER [None]
